FAERS Safety Report 19998795 (Version 1)
Quarter: 2021Q4

REPORT INFORMATION
  Report Type: Spontaneous
  Country: PH (occurrence: PH)
  Receive Date: 20211026
  Receipt Date: 20211026
  Transmission Date: 20220303
  Serious: Yes (Death)
  Sender: FDA-Public Use
  Company Number: PH-BOEHRINGERINGELHEIM-2021-BI-133044

PATIENT
  Age: 59 Year
  Sex: Male

DRUGS (1)
  1. ALTEPLASE [Suspect]
     Active Substance: ALTEPLASE
     Indication: Product used for unknown indication
     Route: 065
     Dates: start: 20211010

REACTIONS (1)
  - Death [Fatal]

NARRATIVE: CASE EVENT DATE: 20211010
